FAERS Safety Report 9853705 (Version 2)
Quarter: 2014Q1

REPORT INFORMATION
  Report Type: Spontaneous
  Country: JP (occurrence: JP)
  Receive Date: 20140129
  Receipt Date: 20140213
  Transmission Date: 20141002
  Serious: Yes (Other)
  Sender: FDA-Public Use
  Company Number: JP-BAYER-2014-015251

PATIENT
  Age: 76 Year
  Sex: Male
  Weight: 47 kg

DRUGS (2)
  1. STIVARGA [Suspect]
     Indication: RECTAL CANCER
     Dosage: 120 MG, QD ON FOR 3 WEEKS AND OFF FOR 1 WEEK
     Route: 048
     Dates: start: 20131220, end: 20140110
  2. KENALOG [Concomitant]
     Indication: STOMATITIS
     Dosage: UNK
     Route: 061
     Dates: start: 20140104

REACTIONS (1)
  - Liver disorder [Recovering/Resolving]
